FAERS Safety Report 23462769 (Version 1)
Quarter: 2024Q1

REPORT INFORMATION
  Report Type: Spontaneous
  Country: US (occurrence: None)
  Receive Date: 20240131
  Receipt Date: 20240131
  Transmission Date: 20240410
  Serious: Yes (Hospitalization)
  Sender: FDA-Public Use
  Company Number: None

PATIENT
  Age: 37 Year
  Sex: Female

DRUGS (8)
  1. LUPRON DEPOT [Suspect]
     Active Substance: LEUPROLIDE ACETATE
     Indication: Infertility female
     Dosage: FREQUENCY : MONTHLY;?
     Route: 058
     Dates: start: 20231125
  2. LUPRON DEPOT [Suspect]
     Active Substance: LEUPROLIDE ACETATE
     Dosage: FREQUENCY : MONTHLY;?
     Route: 058
  3. DOXYCYCLINE HYCLATE [Concomitant]
     Active Substance: DOXYCYCLINE HYCLATE
  4. FOLLISTIM AQ [Concomitant]
     Active Substance: FOLLITROPIN
  5. MENOPUR [Concomitant]
     Active Substance: FOLLITROPIN\LUTEINIZING HORMONE
  6. OVIDREL [Concomitant]
  7. PROGRESTERONE [Concomitant]
  8. SEROPHENE [Concomitant]
     Active Substance: CLOMIPHENE CITRATE

REACTIONS (7)
  - Chest pain [None]
  - Palpitations [None]
  - Hot flush [None]
  - Night sweats [None]
  - Dizziness [None]
  - Headache [None]
  - Heart rate increased [None]

NARRATIVE: CASE EVENT DATE: 20240114
